FAERS Safety Report 7269857-3 (Version None)
Quarter: 2011Q1

REPORT INFORMATION
  Report Type: 
  Country: None (occurrence: None)
  Receive Date: 20110202
  Receipt Date: 20110125
  Transmission Date: 20110831
  Serious: Yes (Hospitalization)
  Sender: FDA-Public Use
  Company Number: US-JNJFOC-20110106989

PATIENT
  Sex: Female
  Weight: 72.58 kg

DRUGS (4)
  1. LEVAQUIN [Suspect]
     Route: 042
  2. LEVAQUIN [Suspect]
     Indication: PRODUCT USED FOR UNKNOWN INDICATION
     Route: 048
  3. LEVAQUIN [Suspect]
     Route: 048
  4. SYNTHROID [Concomitant]
     Indication: THYROID DISORDER
     Route: 048

REACTIONS (9)
  - PSEUDOMEMBRANOUS COLITIS [None]
  - PYREXIA [None]
  - HYPOAESTHESIA [None]
  - ANAPHYLACTIC SHOCK [None]
  - BLOOD PRESSURE DECREASED [None]
  - CHILLS [None]
  - RECTAL HAEMORRHAGE [None]
  - DIZZINESS [None]
  - ADVERSE EVENT [None]
